FAERS Safety Report 9758846 (Version 2)
Quarter: 2014Q2

REPORT INFORMATION
  Report Type: Spontaneous
  Country: US (occurrence: None)
  Receive Date: 20131216
  Receipt Date: 20140514
  Transmission Date: 20141212
  Serious: Yes (Hospitalization)
  Sender: FDA-Public Use
  Company Number: 078153

PATIENT
  Sex: Female

DRUGS (19)
  1. CIMZIA [Suspect]
     Indication: CROHN^S DISEASE
     Dosage: (400 MG 1X/4 WEEKS)
     Dates: start: 20090807
  2. OMEPRAZOLE [Concomitant]
  3. AMITRIPTYLINE [Concomitant]
  4. GABAPENTINE [Concomitant]
  5. PRAMIPEXOLE [Concomitant]
  6. CYCLOBENZAPRINE [Concomitant]
  7. TRAMADOL [Concomitant]
  8. ATENOLOL [Concomitant]
  9. ESTRADIOL [Concomitant]
  10. POLYETHYLENE AGLYCOL [Concomitant]
  11. LORATADIN [Concomitant]
  12. FLUCONAZOLE [Concomitant]
  13. VITAMIN D3 [Concomitant]
  14. CYANOCOBALAMIN [Concomitant]
  15. MERCAPTOPURINE [Concomitant]
  16. METFORMIN [Concomitant]
  17. ENTOCORT [Concomitant]
  18. CELEBREX [Concomitant]
  19. PREDNISONE [Concomitant]

REACTIONS (1)
  - Intestinal obstruction [None]
